FAERS Safety Report 9018347 (Version 1)
Quarter: 2013Q1

REPORT INFORMATION
  Report Type: Spontaneous
  Country: US (occurrence: None)
  Receive Date: 20130111
  Receipt Date: 20130111
  Transmission Date: 20140127
  Serious: Yes (Other)
  Sender: FDA-Public Use
  Company Number: None

PATIENT
  Age: 81 Year
  Sex: Female
  Weight: 56.7 kg

DRUGS (1)
  1. CYMBALTA 30 MG. LILLY [Suspect]
     Indication: PAIN IN EXTREMITY
     Dosage: 1 PILL ONCE A DAY
     Dates: start: 20121223, end: 20121224

REACTIONS (3)
  - Syncope [None]
  - Fall [None]
  - Rib fracture [None]
